FAERS Safety Report 12788522 (Version 3)
Quarter: 2016Q4

REPORT INFORMATION
  Report Type: Report from Study
  Country: None (occurrence: LT)
  Receive Date: 20160928
  Receipt Date: 20161021
  Transmission Date: 20170207
  Serious: Yes (Death, Life-Threatening, Hospitalization, Other)
  Sender: FDA-Public Use
  Company Number: LT-ABBVIE-16K-234-1738430-00

PATIENT
  Age: 59 Year
  Sex: Female
  Weight: 50 kg

DRUGS (5)
  1. HUMIRA [Suspect]
     Active Substance: ADALIMUMAB
     Indication: CROHN^S DISEASE
     Route: 058
     Dates: start: 201308
  2. ZANTAC [Concomitant]
     Active Substance: RANITIDINE HYDROCHLORIDE
     Indication: PRODUCT USED FOR UNKNOWN INDICATION
     Route: 048
     Dates: start: 20160523
  3. DEPAKINE [Concomitant]
     Active Substance: VALPROATE SODIUM
     Indication: EPILEPSY
     Dates: start: 2007
  4. SALBUTAMOL [Concomitant]
     Active Substance: ALBUTEROL
     Indication: ASTHMA
     Dosage: EVERY DAY AS NEEDED
  5. TOPAMAX [Concomitant]
     Active Substance: TOPIRAMATE
     Indication: EPILEPSY
     Dates: start: 2007

REACTIONS (12)
  - Bone marrow failure [Fatal]
  - Acute kidney injury [Fatal]
  - Ovarian cyst [Unknown]
  - Hyperpyrexia [Fatal]
  - Septic shock [Fatal]
  - Urosepsis [Fatal]
  - Pneumonia [Fatal]
  - Respiratory failure [Fatal]
  - Acute respiratory failure [Recovered/Resolved]
  - Renal impairment [Unknown]
  - Renal impairment [Unknown]
  - Urinary tract infection [Unknown]

NARRATIVE: CASE EVENT DATE: 2013
